FAERS Safety Report 7683401-8 (Version None)
Quarter: 2011Q3

REPORT INFORMATION
  Report Type: 
  Country: None (occurrence: None)
  Receive Date: 20110815
  Receipt Date: 20110808
  Transmission Date: 20111222
  Serious: Yes (Other)
  Sender: FDA-Public Use
  Company Number: US-TEVA-295479USA

PATIENT
  Sex: Female

DRUGS (1)
  1. CLARAVIS [Suspect]
     Dosage: 1 QD AM, 1 QD PM
     Dates: start: 20100412, end: 20110201

REACTIONS (1)
  - UNINTENDED PREGNANCY [None]
